FAERS Safety Report 22151753 (Version 1)
Quarter: 2023Q1

REPORT INFORMATION
  Report Type: Spontaneous
  Country: IL (occurrence: IL)
  Receive Date: 20230329
  Receipt Date: 20230329
  Transmission Date: 20230417
  Serious: Yes (Other)
  Sender: FDA-Public Use
  Company Number: IL-SA-SAC20230315001448

PATIENT
  Age: 39 Year
  Sex: Female

DRUGS (1)
  1. ENOXAPARIN SODIUM [Suspect]
     Active Substance: ENOXAPARIN SODIUM
     Dosage: UNK
     Route: 065

REACTIONS (5)
  - Abortion spontaneous [Unknown]
  - Blood thyroid stimulating hormone increased [Unknown]
  - Antinuclear antibody [Unknown]
  - Injection site bruising [Unknown]
  - Maternal exposure during pregnancy [Unknown]
